FAERS Safety Report 8859156 (Version 4)
Quarter: 2015Q3

REPORT INFORMATION
  Report Type: Spontaneous
  Country: US (occurrence: US)
  Receive Date: 20121024
  Receipt Date: 20150714
  Transmission Date: 20151125
  Serious: Yes (Hospitalization, Other)
  Sender: FDA-Public Use
  Company Number: US-009507513-1204USA01068

PATIENT
  Sex: Female
  Weight: 68.27 kg

DRUGS (4)
  1. FOSAMAX [Suspect]
     Active Substance: ALENDRONATE SODIUM
     Indication: OSTEOPENIA
     Dosage: 10 MG, QD
     Route: 048
     Dates: start: 19990220, end: 20000719
  2. FOSAMAX [Suspect]
     Active Substance: ALENDRONATE SODIUM
     Dosage: 5 MG, QD
     Route: 048
  3. FOSAMAX [Suspect]
     Active Substance: ALENDRONATE SODIUM
     Indication: OSTEOPOROSIS
     Dosage: 40 MG, 2 TABS ONCE WEEKLY
     Route: 048
     Dates: start: 20000719, end: 20010115
  4. FOSAMAX [Suspect]
     Active Substance: ALENDRONATE SODIUM
     Dosage: 70 MG, UNK
     Route: 048
     Dates: start: 20010115, end: 20070709

REACTIONS (19)
  - Intramedullary rod insertion [Unknown]
  - Lumbar radiculopathy [Unknown]
  - Cervical vertebral fracture [Unknown]
  - Hand fracture [Unknown]
  - Fracture delayed union [Unknown]
  - Weight increased [Unknown]
  - Upper respiratory tract infection [Unknown]
  - Pain in extremity [Unknown]
  - Fall [Unknown]
  - Hyperlipidaemia [Not Recovered/Not Resolved]
  - Contusion [Unknown]
  - Stress [Unknown]
  - Musculoskeletal pain [Unknown]
  - Femur fracture [Unknown]
  - Device failure [Unknown]
  - Stress fracture [Unknown]
  - Asthma [Not Recovered/Not Resolved]
  - Inappropriate schedule of drug administration [Unknown]
  - Headache [Unknown]

NARRATIVE: CASE EVENT DATE: 19971223
